FAERS Safety Report 13892095 (Version 3)
Quarter: 2017Q4

REPORT INFORMATION
  Report Type: Spontaneous
  Country: US (occurrence: US)
  Receive Date: 20170822
  Receipt Date: 20171016
  Transmission Date: 20180320
  Serious: Yes (Hospitalization, Other)
  Sender: FDA-Public Use
  Company Number: US-ALLERGAN-1735530US

PATIENT
  Age: 96 Year
  Sex: Female

DRUGS (2)
  1. RESTASIS [Suspect]
     Active Substance: CYCLOSPORINE
     Indication: DRY EYE
     Dosage: 2 GTT, BID
     Route: 047
     Dates: start: 20160909
  2. AMLODIPINE [Concomitant]
     Active Substance: AMLODIPINE BESYLATE
     Indication: RENAL FAILURE

REACTIONS (7)
  - Heart alternation [Recovered/Resolved]
  - Spinal fracture [Recovering/Resolving]
  - Visual impairment [Not Recovered/Not Resolved]
  - Influenza [Recovered/Resolved]
  - Hepatic enzyme abnormal [Unknown]
  - Eye pain [Not Recovered/Not Resolved]
  - Urethral disorder [Unknown]

NARRATIVE: CASE EVENT DATE: 20170306
